FAERS Safety Report 13350418 (Version 2)
Quarter: 2017Q2

REPORT INFORMATION
  Report Type: Spontaneous
  Country: US (occurrence: US)
  Receive Date: 20170320
  Receipt Date: 20170508
  Transmission Date: 20170830
  Serious: Yes (Other)
  Sender: FDA-Public Use
  Company Number: US-PFIZER INC-2017113025

PATIENT
  Age: 63 Year
  Sex: Female
  Weight: 50 kg

DRUGS (4)
  1. ESTRING [Suspect]
     Active Substance: ESTRADIOL
     Indication: VULVOVAGINAL DRYNESS
     Dosage: 2 MG, EVERY 3 MONTHS
     Route: 067
  2. VITAMIN D3 [Concomitant]
     Active Substance: CHOLECALCIFEROL
     Dosage: 1000 IU, 1X/DAY
  3. CALCIUM [Concomitant]
     Active Substance: CALCIUM
  4. VITAMIN E [Concomitant]
     Active Substance: .ALPHA.-TOCOPHEROL

REACTIONS (1)
  - Breast cancer [Unknown]
